FAERS Safety Report 24406383 (Version 1)
Quarter: 2024Q4

REPORT INFORMATION
  Report Type: Spontaneous
  Country: US (occurrence: None)
  Receive Date: 20241007
  Receipt Date: 20241007
  Transmission Date: 20250115
  Serious: Yes (Hospitalization)
  Sender: Public
  Company Number: None

PATIENT
  Sex: Male

DRUGS (5)
  1. MYCOPHENOLIC ACID [Suspect]
     Active Substance: MYCOPHENOLIC ACID
     Indication: Myositis
     Dosage: OTHER QUANTITY : TAKE 2 TABLETS;?FREQUENCY : TWICE A DAY;?
     Route: 048
     Dates: start: 20230221
  2. ASPIRIN [Concomitant]
     Active Substance: ASPIRIN
  3. CALCIUM GARB POW HEAVY [Concomitant]
  4. VITAMINS [Concomitant]
     Active Substance: VITAMINS
  5. VITAMIN D [Concomitant]
     Active Substance: VITAMIN D NOS

REACTIONS (2)
  - Pancreatitis acute [None]
  - Therapy change [None]
